FAERS Safety Report 4426795-9 (Version None)
Quarter: 2004Q3

REPORT INFORMATION
  Report Type: 
  Country: None (occurrence: None)
  Receive Date: 20040816
  Receipt Date: 20040622
  Transmission Date: 20050211
  Serious: Yes (Hospitalization)
  Sender: FDA-Public Use
  Company Number: PHRM2004FR02177

PATIENT
  Age: 90 Year
  Sex: Female
  Weight: 67 kg

DRUGS (15)
  1. COTAREG [Suspect]
     Dosage: 1 DF, QD
     Route: 048
     Dates: end: 20040508
  2. FURADANTIN [Suspect]
     Indication: URINARY TRACT INFECTION
     Dosage: 50 MG, QD
     Route: 048
     Dates: start: 20040401, end: 20040508
  3. EDUCTYL [Suspect]
     Route: 054
     Dates: start: 20040503, end: 20040505
  4. DI-ANTALVIC [Suspect]
     Dosage: 2 DF, BID
     Route: 048
     Dates: end: 20040508
  5. PREDNISONE TAB [Concomitant]
     Dosage: 3 MG, QD
     Route: 048
  6. LASIX [Concomitant]
     Dosage: 40 MG, QD
     Route: 048
  7. LEVOTHYROXINE SODIUM [Concomitant]
  8. STILNOX [Concomitant]
  9. DIGOXIN [Concomitant]
  10. KALEORID [Concomitant]
  11. ASPIRIN [Concomitant]
  12. DIAFUSOR [Concomitant]
  13. DEBRIDAT ^PARKE DAVIS^ [Concomitant]
  14. DUPHALAC [Concomitant]
  15. LANSOYL [Concomitant]

REACTIONS (16)
  - ALANINE AMINOTRANSFERASE INCREASED [None]
  - ASPARTATE AMINOTRANSFERASE INCREASED [None]
  - BLOOD ALKALINE PHOSPHATASE INCREASED [None]
  - BLOOD AMYLASE INCREASED [None]
  - BLOOD CREATININE INCREASED [None]
  - CREATININE RENAL CLEARANCE DECREASED [None]
  - DEHYDRATION [None]
  - DIABETES MELLITUS [None]
  - GAMMA-GLUTAMYLTRANSFERASE INCREASED [None]
  - HYPONATRAEMIA [None]
  - HYPOTENSION [None]
  - JAUNDICE [None]
  - LIPASE INCREASED [None]
  - LIVER DISORDER [None]
  - PANCREATIC ENZYMES INCREASED [None]
  - RENAL FAILURE [None]
